FAERS Safety Report 7803427-0 (Version None)
Quarter: 2011Q4

REPORT INFORMATION
  Report Type: 
  Country: None (occurrence: None)
  Receive Date: 20111007
  Receipt Date: 20111004
  Transmission Date: 20120403
  Serious: Yes (Hospitalization, Other)
  Sender: FDA-Public Use
  Company Number: US-AMGEN-USASP2011012781

PATIENT
  Age: 64 Year
  Sex: Female
  Weight: 113.83 kg

DRUGS (15)
  1. NPLATE [Suspect]
     Indication: IDIOPATHIC THROMBOCYTOPENIC PURPURA
     Dosage: 1000 MUG, UNK
     Route: 058
     Dates: start: 20091014, end: 20101124
  2. KLOR-CON [Concomitant]
     Dosage: 20 MEQ, QD
     Route: 048
  3. DANAZOL [Concomitant]
     Dosage: 200 MG, TID
     Route: 048
  4. LEVOXYL [Concomitant]
     Dosage: 75 MUG, UNK
     Route: 048
  5. PRILOSEC [Concomitant]
     Dosage: 20 MG, QD
     Route: 048
  6. PREDNISONE [Concomitant]
     Dosage: 10 MG, QD
     Route: 048
  7. TESSALON [Concomitant]
     Indication: COUGH
     Dosage: 200 MG, PRN
     Route: 048
  8. PROPRANOLOL HYDROCHLORIDE [Concomitant]
     Dosage: 5 MG, QD
     Route: 048
  9. ALDACTONE [Concomitant]
     Dosage: 50 MG, QD
     Route: 048
  10. PROMACTA [Concomitant]
     Dosage: 25 MG, UNK
  11. TRAMADOL HCL [Concomitant]
     Indication: PAIN
     Dosage: UNK
     Route: 048
  12. VICODIN [Concomitant]
     Indication: PAIN
     Dosage: UNK
     Route: 048
  13. COUMADIN [Concomitant]
     Dosage: 5 MG, UNK
  14. CALCIUM CARBONATE W/VITAMIN D NOS [Concomitant]
     Route: 048
  15. LASIX [Concomitant]
     Dosage: 40 MG, UNK
     Route: 048

REACTIONS (16)
  - ASTHENIA [None]
  - DEEP VEIN THROMBOSIS [None]
  - THERAPEUTIC RESPONSE DECREASED [None]
  - HYPOTHYROIDISM [None]
  - CHRONIC OBSTRUCTIVE PULMONARY DISEASE [None]
  - PULMONARY EMBOLISM [None]
  - DIARRHOEA [None]
  - PLATELET COUNT ABNORMAL [None]
  - OEDEMA PERIPHERAL [None]
  - IMPAIRED GASTRIC EMPTYING [None]
  - HYPERTENSION [None]
  - INCREASED TENDENCY TO BRUISE [None]
  - PANCREATIC MASS [None]
  - DRUG INEFFECTIVE [None]
  - GASTROOESOPHAGEAL REFLUX DISEASE [None]
  - NAUSEA [None]
